FAERS Safety Report 9357671 (Version 5)
Quarter: 2013Q3

REPORT INFORMATION
  Report Type: Spontaneous
  Country: JP (occurrence: JP)
  Receive Date: 20130620
  Receipt Date: 20130930
  Transmission Date: 20140515
  Serious: Yes (Life-Threatening, Hospitalization, Other)
  Sender: FDA-Public Use
  Company Number: JP-PFIZER INC-2013182996

PATIENT
  Age: 76 Year
  Sex: Female

DRUGS (7)
  1. LYRICA [Suspect]
     Indication: SPONDYLOLISTHESIS
     Dosage: UNK
     Route: 048
     Dates: start: 201205, end: 20130418
  2. JANUVIA [Concomitant]
     Dosage: UNK
     Dates: start: 201208, end: 20130419
  3. NORVASC [Concomitant]
     Indication: BLOOD PRESSURE INCREASED
     Dosage: UNK
     Dates: start: 20130501
  4. ANPLAG [Concomitant]
     Dosage: UNK
     Dates: start: 201205, end: 20130418
  5. LANTUS [Concomitant]
  6. ALESION [Concomitant]
  7. GLUBES [Concomitant]

REACTIONS (8)
  - Liver disorder [Recovered/Resolved]
  - Blood albumin decreased [Recovered/Resolved]
  - Oedema peripheral [Recovered/Resolved]
  - Blood pressure increased [Unknown]
  - Nasopharyngitis [Unknown]
  - Urticaria [Unknown]
  - Decreased appetite [Recovered/Resolved]
  - Abdominal discomfort [Unknown]
